FAERS Safety Report 9571344 (Version 1)
Quarter: 2013Q4

REPORT INFORMATION
  Report Type: Spontaneous
  Country: IN (occurrence: IN)
  Receive Date: 20131001
  Receipt Date: 20131001
  Transmission Date: 20140711
  Serious: Yes (Other)
  Sender: FDA-Public Use
  Company Number: IN-ROXANE LABORATORIES, INC.-2013-RO-01583RO

PATIENT
  Age: 28 Year
  Sex: Male

DRUGS (3)
  1. MYCOPHENOLATE MOFETIL [Suspect]
     Indication: RENAL TRANSPLANT
  2. PREDNISOLONE [Suspect]
     Indication: RENAL TRANSPLANT
  3. TACROLIMUS [Suspect]
     Indication: RENAL TRANSPLANT

REACTIONS (2)
  - Transplant dysfunction [Unknown]
  - Colitis [Unknown]
